FAERS Safety Report 9514359 (Version 3)
Quarter: 2013Q4

REPORT INFORMATION
  Report Type: Spontaneous
  Country: JP (occurrence: JP)
  Receive Date: 20130911
  Receipt Date: 20131030
  Transmission Date: 20140711
  Serious: Yes (Life-Threatening, Hospitalization, Other)
  Sender: FDA-Public Use
  Company Number: JP-009507513-1309JPN003743

PATIENT
  Age: 79 Year
  Sex: Male

DRUGS (10)
  1. JANUVIA TABLETS 50MG [Suspect]
     Indication: TYPE 2 DIABETES MELLITUS
     Dosage: 50 MG, 1 DAY (DIVIDED DOSE FREQUENCY UNKNOWN)
     Route: 048
     Dates: end: 20130420
  2. JANUVIA TABLETS 50MG [Suspect]
     Dosage: 50 MG, QD
     Route: 048
     Dates: start: 201306, end: 20130625
  3. AMARYL [Suspect]
     Indication: TYPE 2 DIABETES MELLITUS
     Dosage: 6 MG, 1 DAY (DIVIDED DOSE FREQUENCY UNKNOWN)
     Route: 048
     Dates: end: 20130420
  4. AMARYL [Suspect]
     Dosage: 1 MG, QD
     Route: 048
     Dates: start: 201306, end: 20130625
  5. METGLUCO [Suspect]
     Indication: TYPE 2 DIABETES MELLITUS
     Dosage: 1000 MG, TWICE A DAY
     Route: 048
     Dates: end: 20130420
  6. METGLUCO [Suspect]
     Dosage: 1000 MG, TWICE DAILY
     Route: 048
     Dates: start: 201306, end: 20130625
  7. BAYASPIRIN [Concomitant]
     Indication: ANGINA PECTORIS
     Dosage: DAILY DOSAGE UNKNOWN
     Route: 065
  8. BLOPRESS [Concomitant]
     Indication: HYPERTENSION
     Dosage: 8 MG, QD
     Route: 048
     Dates: end: 20130625
  9. ARTIST [Concomitant]
     Dosage: UNK
     Route: 048
     Dates: end: 20130625
  10. INSULIN [Concomitant]

REACTIONS (5)
  - Peritonitis [Recovered/Resolved]
  - Colon cancer [Recovered/Resolved]
  - Renal disorder [Recovering/Resolving]
  - Hypoglycaemia [Recovered/Resolved]
  - Surgery [Unknown]
